FAERS Safety Report 19926697 (Version 2)
Quarter: 2021Q4

REPORT INFORMATION
  Report Type: Spontaneous
  Country: US (occurrence: US)
  Receive Date: 20211007
  Receipt Date: 20211227
  Transmission Date: 20220303
  Serious: Yes (Hospitalization, Other)
  Sender: FDA-Public Use
  Company Number: US-CIPLA LTD.-2021US06642

PATIENT

DRUGS (2)
  1. LAMOTRIGINE [Suspect]
     Active Substance: LAMOTRIGINE
     Dosage: UNK
     Route: 048
  2. BUPROPION HYDROCHLORIDE XL [Suspect]
     Active Substance: BUPROPION HYDROCHLORIDE
     Dosage: UNK
     Route: 048

REACTIONS (5)
  - Mental status changes [Recovered/Resolved]
  - Status epilepticus [Recovered/Resolved]
  - Intentional overdose [Unknown]
  - Unresponsive to stimuli [Recovered/Resolved]
  - Suicide attempt [Unknown]
